FAERS Safety Report 24843080 (Version 1)
Quarter: 2025Q1

REPORT INFORMATION
  Report Type: Report from Study
  Country: US (occurrence: US)
  Receive Date: 20250115
  Receipt Date: 20250115
  Transmission Date: 20250408
  Serious: No
  Sender: HRA PHARMA
  Company Number: US-ORG100014127-2024000103

PATIENT
  Age: 67 Year
  Sex: Male

DRUGS (3)
  1. LYSODREN [Suspect]
     Active Substance: MITOTANE
     Indication: Adrenocortical carcinoma
     Dosage: TAKE 2 TABLETS BY MOUTH TWICE DAILY
     Route: 048
     Dates: start: 20240109
  2. LYSODREN [Suspect]
     Active Substance: MITOTANE
     Indication: Adrenocortical carcinoma
     Dosage: 06 TABLETS PER DAY
     Route: 048
  3. DULCOLAX TAB 5MG [Concomitant]
     Indication: Product used for unknown indication

REACTIONS (3)
  - Hiccups [Not Recovered/Not Resolved]
  - Constipation [Not Recovered/Not Resolved]
  - Fatigue [Not Recovered/Not Resolved]

NARRATIVE: CASE EVENT DATE: 20240120
